FAERS Safety Report 13711459 (Version 1)
Quarter: 2017Q3

REPORT INFORMATION
  Report Type: Spontaneous
  Country: US (occurrence: US)
  Receive Date: 20170701
  Receipt Date: 20170701
  Transmission Date: 20171127
  Serious: Yes (Disabling)
  Sender: FDA-Public Use
  Company Number: None

PATIENT
  Age: 30 Year
  Sex: Female
  Weight: 49.5 kg

DRUGS (5)
  1. IRON [Concomitant]
     Active Substance: IRON
  2. BUPROPRION XL [Suspect]
     Active Substance: BUPROPION
     Indication: SMOKING CESSATION THERAPY
     Dosage: ?          OTHER STRENGTH:MG;QUANTITY:1 TABLET(S);?
     Route: 048
     Dates: start: 20170623, end: 20170701
  3. MITOGEN [Concomitant]
  4. IBUPROFEN. [Concomitant]
     Active Substance: IBUPROFEN
  5. RHODIOLA [Concomitant]
     Active Substance: HERBALS

REACTIONS (4)
  - Arthralgia [None]
  - Hypoaesthesia [None]
  - Drug ineffective [None]
  - Paraesthesia [None]

NARRATIVE: CASE EVENT DATE: 20170701
